FAERS Safety Report 11191732 (Version 1)
Quarter: 2015Q2

REPORT INFORMATION
  Report Type: Report from Study
  Country: US (occurrence: None)
  Receive Date: 20150603
  Receipt Date: 20150603
  Transmission Date: 20150821
  Serious: No
  Sender: FDA-Public Use
  Company Number: 2015TASUS000729

PATIENT
  Age: 49 Year
  Sex: Female
  Weight: 83 kg

DRUGS (10)
  1. HETLIOZ [Suspect]
     Active Substance: TASIMELTEON
     Indication: CIRCADIAN RHYTHM SLEEP DISORDER
     Route: 048
     Dates: start: 20150308
  2. VITAMIN D (COLECALCIFEROL) [Concomitant]
  3. LISINOPRIL (LISINOPRIL) [Concomitant]
     Active Substance: LISINOPRIL
  4. KLONOPIN [Concomitant]
     Active Substance: CLONAZEPAM
  5. LEVOTHYROXINE (LEVOTHYROXINE SODIUM) [Concomitant]
  6. PRILOSEC (OMEPRAZOLE) [Concomitant]
     Active Substance: OMEPRAZOLE MAGNESIUM
  7. VALTREX [Concomitant]
     Active Substance: VALACYCLOVIR HYDROCHLORIDE
  8. B12 (CYANOCOBALAMIN) [Concomitant]
  9. CYTOMEL (LIOTHYRONINE SODIUM) [Concomitant]
  10. TESTOSTERONE (TESTOSTERONE) [Concomitant]

REACTIONS (1)
  - Herpes zoster [None]

NARRATIVE: CASE EVENT DATE: 20150323
